FAERS Safety Report 6906657-5 (Version None)
Quarter: 2010Q3

REPORT INFORMATION
  Report Type: 
  Country: None (occurrence: None)
  Receive Date: 20100804
  Receipt Date: 20100723
  Transmission Date: 20110219
  Serious: Yes (Other)
  Sender: FDA-Public Use
  Company Number: CO-PFIZER INC-2010093433

PATIENT
  Age: 36 Year
  Sex: Female

DRUGS (1)
  1. LYRICA [Suspect]
     Indication: PAIN IN EXTREMITY
     Dosage: 150 MG, 3X/DAY
     Route: 048
     Dates: start: 20100601

REACTIONS (5)
  - INCREASED APPETITE [None]
  - NEPHROLITHIASIS [None]
  - NEURITIS [None]
  - PAIN [None]
  - SOMNOLENCE [None]
